FAERS Safety Report 23104144 (Version 1)
Quarter: 2023Q4

REPORT INFORMATION
  Report Type: Spontaneous
  Country: US (occurrence: None)
  Receive Date: 20231025
  Receipt Date: 20231025
  Transmission Date: 20240110
  Serious: Yes (Other)
  Sender: FDA-Public Use
  Company Number: US-ENDO-CASE-0033959

PATIENT
  Sex: Female

DRUGS (16)
  1. MORPHINE SULFATE [Suspect]
     Active Substance: MORPHINE SULFATE
  2. PERCOCET [Suspect]
     Active Substance: ACETAMINOPHEN\OXYCODONE HYDROCHLORIDE
  3. ACETAMINOPHEN\OXYCODONE HYDROCHLORIDE [Suspect]
     Active Substance: ACETAMINOPHEN\OXYCODONE HYDROCHLORIDE
  4. OPANA ER [Suspect]
     Active Substance: OXYMORPHONE HYDROCHLORIDE
  5. ENDOCET [Suspect]
     Active Substance: ACETAMINOPHEN\OXYCODONE HYDROCHLORIDE
  6. TRAMADOL HYDROCHLORIDE [Suspect]
     Active Substance: TRAMADOL HYDROCHLORIDE
  7. TRAMADOL HYDROCHLORIDE [Suspect]
     Active Substance: TRAMADOL HYDROCHLORIDE
  8. DEPODUR [Suspect]
     Active Substance: MORPHINE SULFATE
  9. ACETAMINOPHEN\HYDROCODONE BITARTRATE [Suspect]
     Active Substance: ACETAMINOPHEN\HYDROCODONE BITARTRATE
  10. ACETAMINOPHEN AND CODEINE [Suspect]
     Active Substance: ACETAMINOPHEN\CODEINE PHOSPHATE
  11. BUTALBITAL, ACETAMINOPHEN AND CAFFEINE WITH CODEINE PHOSPHATE [Suspect]
     Active Substance: ACETAMINOPHEN\BUTALBITAL\CAFFEINE\CODEINE PHOSPHATE
  12. HYDROCODONE BITARTRATE\IBUPROFEN [Suspect]
     Active Substance: HYDROCODONE BITARTRATE\IBUPROFEN
  13. MORPHINE SULFATE [Suspect]
     Active Substance: MORPHINE SULFATE
  14. BELBUCA [Suspect]
     Active Substance: BUPRENORPHINE HYDROCHLORIDE
  15. FENTANYL CITRATE [Suspect]
     Active Substance: FENTANYL CITRATE
  16. OPANA [Suspect]
     Active Substance: OXYMORPHONE HYDROCHLORIDE

REACTIONS (6)
  - Overdose [Unknown]
  - Dependence [Unknown]
  - Cardiac failure [Unknown]
  - Renal failure [Unknown]
  - Tooth loss [Unknown]
  - Amnesia [Unknown]
